FAERS Safety Report 10624672 (Version 1)
Quarter: 2014Q4

REPORT INFORMATION
  Report Type: Spontaneous
  Country: CH (occurrence: CH)
  Receive Date: 20141203
  Receipt Date: 20141203
  Transmission Date: 20150529
  Serious: Yes (Hospitalization)
  Sender: FDA-Public Use
  Company Number: CH-TEVA-524158ISR

PATIENT
  Age: 61 Year
  Sex: Female

DRUGS (3)
  1. EXFORGE HCT [Concomitant]
     Active Substance: AMLODIPINE BESYLATE\HYDROCHLOROTHIAZIDE\VALSARTAN
     Indication: HYPERTENSION
     Dosage: .5 DOSAGE FORMS DAILY; 1 DF = 5 MG AMLODIPINE + 160 MG VALSARTAN + 12.5 MG HYDROCHLOROTHIAZIDE
     Route: 048
  2. PANTOPRAZOLE [Concomitant]
     Active Substance: PANTOPRAZOLE SODIUM
     Dosage: 40 MILLIGRAM DAILY;
     Route: 048
  3. CO-AMOXI-MEPHA LACTAB [Suspect]
     Active Substance: AMOXICILLIN\CLAVULANIC ACID
     Indication: DIVERTICULITIS
     Dosage: 2 GRAM DAILY; 1 DF = 875 MG AMOXICILLIN + 125 MG CLAVULANIC ACID
     Route: 048
     Dates: start: 20141031, end: 20141107

REACTIONS (12)
  - Influenza like illness [Recovered/Resolved]
  - Transient ischaemic attack [None]
  - Fluid intake reduced [None]
  - Decreased appetite [Recovered/Resolved]
  - Hypokalaemia [None]
  - Pyrexia [Recovered/Resolved]
  - White blood cell count increased [None]
  - Headache [Recovered/Resolved]
  - Facial pain [Recovered/Resolved]
  - Hypoglycaemia [None]
  - Aphasia [Not Recovered/Not Resolved]
  - Fatigue [None]

NARRATIVE: CASE EVENT DATE: 20141101
